FAERS Safety Report 6657871-8 (Version None)
Quarter: 2010Q1

REPORT INFORMATION
  Report Type: 
  Country: None (occurrence: None)
  Receive Date: 20100330
  Receipt Date: 20100322
  Transmission Date: 20100710
  Serious: Yes (Hospitalization)
  Sender: FDA-Public Use
  Company Number: FR-ROCHE-690954

PATIENT
  Sex: Female
  Weight: 90 kg

DRUGS (6)
  1. TOCILIZUMAB [Suspect]
     Indication: RHEUMATOID ARTHRITIS
     Dosage: FORM: INFUSION, FREQUENCY: CYCLIC, SECOND INFUSION DELAYED, TEMPORARILY INTERRUPTED
     Route: 042
     Dates: start: 20100205, end: 20100305
  2. TOCILIZUMAB [Suspect]
     Route: 042
     Dates: start: 20100316
  3. ARAVA [Concomitant]
     Indication: RHEUMATOID ARTHRITIS
     Dosage: TDD: 20
     Dates: start: 20080101
  4. PREDNISONE [Concomitant]
     Indication: RHEUMATOID ARTHRITIS
     Dosage: TDD: 10
     Dates: start: 20080101
  5. RAMIPRIL [Concomitant]
     Dosage: TDD: 10
  6. VERAPAMIL [Concomitant]
     Dosage: TDD: 120

REACTIONS (1)
  - ARTERIOSPASM CORONARY [None]
